FAERS Safety Report 14720664 (Version 1)
Quarter: 2018Q2

REPORT INFORMATION
  Report Type: Spontaneous
  Country: SK (occurrence: SK)
  Receive Date: 20180405
  Receipt Date: 20180405
  Transmission Date: 20180711
  Serious: Yes (Other)
  Sender: FDA-Public Use
  Company Number: SK-MYLANLABS-2018M1021273

PATIENT
  Age: 53 Year
  Sex: Male

DRUGS (6)
  1. NILOTINIB [Suspect]
     Active Substance: NILOTINIB
     Indication: PLEURAL EFFUSION
     Route: 065
  2. CEFUROXIM /00454601/ [Suspect]
     Active Substance: CEFUROXIME
     Indication: PLEURAL EFFUSION
     Route: 065
  3. ALBUMIN HUMAN [Suspect]
     Active Substance: ALBUMIN HUMAN
     Indication: PLEURAL EFFUSION
     Route: 065
  4. ALBUMIN HUMAN [Suspect]
     Active Substance: ALBUMIN HUMAN
     Indication: HYPOALBUMINAEMIA
  5. MOXIFLOXACIN. [Suspect]
     Active Substance: MOXIFLOXACIN
     Indication: PLEURAL EFFUSION
     Route: 065
  6. VALSARTAN. [Suspect]
     Active Substance: VALSARTAN
     Indication: PLEURAL EFFUSION
     Route: 065

REACTIONS (2)
  - No adverse event [Unknown]
  - Drug effect incomplete [Unknown]
